FAERS Safety Report 23315803 (Version 1)
Quarter: 2023Q4

REPORT INFORMATION
  Report Type: Spontaneous
  Country: BR (occurrence: BR)
  Receive Date: 20231219
  Receipt Date: 20231219
  Transmission Date: 20240110
  Serious: Yes (Other)
  Sender: FDA-Public Use
  Company Number: BR-AMERICAN REGENT INC-2023002944

PATIENT
  Age: 39 Year
  Sex: Female
  Weight: 61 kg

DRUGS (2)
  1. VENOFER [Suspect]
     Active Substance: IRON SUCROSE
     Indication: Blood iron decreased
     Dosage: (SINGLE DOSE OF 2 AMPOULES) FIRST DOSE (200 MG)
     Dates: start: 20230418, end: 20230418
  2. VENOFER [Suspect]
     Active Substance: IRON SUCROSE
     Dosage: (IN A SINGLE DOSE OF 1 AMPOULE) SECOND DOSE (100 MG)
     Dates: start: 20230926, end: 20230926

REACTIONS (4)
  - Vein rupture [Recovered/Resolved]
  - Haematoma [Unknown]
  - Product administration error [Unknown]
  - Product administration interrupted [Unknown]

NARRATIVE: CASE EVENT DATE: 20230926
